FAERS Safety Report 12886890 (Version 1)
Quarter: 2016Q4

REPORT INFORMATION
  Report Type: Spontaneous
  Country: US (occurrence: US)
  Receive Date: 20161026
  Receipt Date: 20161026
  Transmission Date: 20170207
  Serious: Yes (Hospitalization)
  Sender: FDA-Public Use
  Company Number: US-NOVOPROD-515269

PATIENT
  Age: 75 Year
  Sex: Male
  Weight: 86.17 kg

DRUGS (4)
  1. NOVOLIN N [Suspect]
     Active Substance: INSULIN HUMAN
     Indication: TYPE 2 DIABETES MELLITUS
     Dosage: 15 UNITS IN THE EVENING AND 5 UNITS IN THE MORNING
     Route: 058
     Dates: start: 201608, end: 20161001
  2. NOVOLIN N [Suspect]
     Active Substance: INSULIN HUMAN
     Dosage: 10 UNITS IN THE EVENING AND 5 UNITS IN THE MORNING
     Route: 058
     Dates: start: 20161001, end: 20161017
  3. NOVOLIN N [Suspect]
     Active Substance: INSULIN HUMAN
     Dosage: 15 UNITS IN THE EVENING AND 5 UNITS IN THE MORNING
     Route: 058
     Dates: start: 20161017
  4. GLIPIZIDE. [Concomitant]
     Active Substance: GLIPIZIDE
     Indication: TYPE 2 DIABETES MELLITUS
     Dosage: 10 MG
     Route: 065

REACTIONS (3)
  - Blood glucose increased [Not Recovered/Not Resolved]
  - Myocardial infarction [Recovering/Resolving]
  - Headache [Not Recovered/Not Resolved]

NARRATIVE: CASE EVENT DATE: 201608
